FAERS Safety Report 11615185 (Version 1)
Quarter: 2015Q4

REPORT INFORMATION
  Report Type: Spontaneous
  Country: US (occurrence: US)
  Receive Date: 20151009
  Receipt Date: 20151009
  Transmission Date: 20160304
  Serious: No
  Sender: FDA-Public Use
  Company Number: US-PFIZER INC-2015331095

PATIENT
  Sex: Female

DRUGS (10)
  1. ATENOLOL. [Concomitant]
     Active Substance: ATENOLOL
     Indication: HYPERTENSION
     Dosage: 100MG IN THE MORNING AND 50MG AT NIGHT
     Dates: start: 1995
  2. VALIUM [Concomitant]
     Active Substance: DIAZEPAM
  3. TRAZODONE [Concomitant]
     Active Substance: TRAZODONE HYDROCHLORIDE
  4. ASPIRIN. [Concomitant]
     Active Substance: ASPIRIN
  5. LYRICA [Suspect]
     Active Substance: PREGABALIN
     Indication: NEUROPATHY PERIPHERAL
     Dosage: 100MG ONCE OR TWICE A DAY, 12 HOURS APART
     Dates: start: 2005
  6. FIORICET [Concomitant]
     Active Substance: ACETAMINOPHEN\BUTALBITAL\CAFFEINE
  7. LYRICA [Suspect]
     Active Substance: PREGABALIN
     Indication: SPINAL CORD INJURY
     Dosage: 75 MG
     Dates: start: 2005
  8. LYRICA [Suspect]
     Active Substance: PREGABALIN
     Dosage: 50 MG, AT BEDTIME
     Dates: start: 2015
  9. ZOLOFT [Concomitant]
     Active Substance: SERTRALINE HYDROCHLORIDE
  10. CATAPRES [Concomitant]
     Active Substance: CLONIDINE HYDROCHLORIDE
     Indication: BLOOD PRESSURE INCREASED
     Dosage: 0.1MG ONCE A DAY WITH AN OPTION TO USE IT THREE TIMES A DAY

REACTIONS (3)
  - Feeling abnormal [Recovered/Resolved]
  - Drug intolerance [Unknown]
  - Drug ineffective [Unknown]
